FAERS Safety Report 7939592-4 (Version None)
Quarter: 2011Q4

REPORT INFORMATION
  Report Type: 
  Country: None (occurrence: None)
  Receive Date: 20111125
  Receipt Date: 20110907
  Transmission Date: 20120403
  Serious: No
  Sender: FDA-Public Use
  Company Number: US-BAYER-2011-088986

PATIENT
  Age: 79 Year
  Sex: Male
  Weight: 82 kg

DRUGS (4)
  1. ALEVE (CAPLET) [Suspect]
     Indication: ARTHRITIS
     Dosage: 2 DF, QD
     Route: 048
  2. ANTIHYPERTENSIVES [Concomitant]
  3. FLOMAX [Concomitant]
  4. RAPID HEART BEAT MEDICATION [Concomitant]

REACTIONS (1)
  - CONSTIPATION [None]
